FAERS Safety Report 24132193 (Version 2)
Quarter: 2024Q3

REPORT INFORMATION
  Report Type: Spontaneous
  Country: US (occurrence: US)
  Receive Date: 20240724
  Receipt Date: 20240823
  Transmission Date: 20241017
  Serious: No
  Sender: BAYER
  Company Number: US-BAYER-2024A106895

PATIENT
  Age: 3 Year
  Sex: Female

DRUGS (3)
  1. MIRALAX [Suspect]
     Active Substance: POLYETHYLENE GLYCOL 3350
     Indication: Gastrointestinal disorder
     Dosage: UNK
     Dates: start: 20231108, end: 20231110
  2. MIRALAX [Suspect]
     Active Substance: POLYETHYLENE GLYCOL 3350
     Indication: Gastrointestinal disorder
     Dosage: UNK
     Route: 048
     Dates: start: 20231111
  3. MIRALAX [Suspect]
     Active Substance: POLYETHYLENE GLYCOL 3350
     Indication: Gastrointestinal disorder
     Dosage: BETWEEN HALF OF A CAP AND A FULL CAP
     Dates: start: 202402

REACTIONS (4)
  - Product use issue [Recovered/Resolved]
  - Abdominal pain upper [Recovered/Resolved]
  - Constipation [None]
  - Suspected product quality issue [None]

NARRATIVE: CASE EVENT DATE: 20231109
